FAERS Safety Report 9466779 (Version 3)
Quarter: 2013Q3

REPORT INFORMATION
  Report Type: Spontaneous
  Country: JP (occurrence: JP)
  Receive Date: 20130820
  Receipt Date: 20130909
  Transmission Date: 20140515
  Serious: No
  Sender: FDA-Public Use
  Company Number: JP-B.I. PHARMACEUTICALS,INC./RIDGEFIELD-2013-BI-25575NB

PATIENT
  Age: 70 Year
  Sex: Male

DRUGS (1)
  1. PRAZAXA [Suspect]
     Dosage: 220 MG
     Route: 048

REACTIONS (1)
  - Coagulation factor VIII level decreased [Unknown]
